FAERS Safety Report 9903958 (Version 1)
Quarter: 2014Q1

REPORT INFORMATION
  Report Type: Spontaneous
  Country: US (occurrence: US)
  Receive Date: 20140218
  Receipt Date: 20140218
  Transmission Date: 20141002
  Serious: No
  Sender: FDA-Public Use
  Company Number: US-BIOGENIDEC-2014BI011795

PATIENT
  Age: 50 Year
  Sex: Male
  Weight: 86 kg

DRUGS (11)
  1. TECFIDERA [Suspect]
     Indication: MULTIPLE SCLEROSIS
     Route: 048
  2. TECFIDERA [Suspect]
     Indication: MULTIPLE SCLEROSIS
     Route: 048
     Dates: end: 20140124
  3. LIPITOR [Concomitant]
     Route: 048
  4. METFORMIN [Concomitant]
     Route: 048
  5. BACLOFEN [Concomitant]
     Route: 048
  6. OXYBUTYNIN [Concomitant]
     Route: 048
  7. VITAMIN C [Concomitant]
     Route: 048
  8. VITAMIN D [Concomitant]
     Route: 048
  9. WARFARIN [Concomitant]
     Route: 048
  10. VITAMIN D3 [Concomitant]
     Route: 048
  11. AMPYRA [Concomitant]
     Route: 048

REACTIONS (2)
  - Pain [Unknown]
  - Nausea [Unknown]
